FAERS Safety Report 6792804 (Version 6)
Quarter: 2013Q1

REPORT INFORMATION
  Report Type: Report from Study
  Country: US (occurrence: US)
  Receive Date: 20081021
  Receipt Date: 20130204
  Transmission Date: 20140127
  Serious: Yes (Other)
  Sender: FDA-Public Use
  Company Number: US-ROCHE-GNE267436

PATIENT
  Age: 32 Year
  Sex: Female
  Weight: 147.55 kg

DRUGS (4)
  1. OMALIZUMAB [Suspect]
     Indication: ASTHMA
     Dosage: 300 MG, Q2W
     Route: 058
     Dates: start: 200412, end: 20051214
  2. OMALIZUMAB [Suspect]
     Indication: RHINITIS ALLERGIC
     Route: 058
     Dates: start: 20051214
  3. OMALIZUMAB [Suspect]
     Route: 065
     Dates: start: 20080726
  4. OMALIZUMAB [Suspect]
     Route: 065
     Dates: start: 20080823

REACTIONS (5)
  - Anaphylactic reaction [Recovered/Resolved]
  - Dizziness [Unknown]
  - Hyperhidrosis [Unknown]
  - Palpitations [Recovered/Resolved]
  - Palpitations [Unknown]
